FAERS Safety Report 8428602 (Version 3)
Quarter: 2016Q2

REPORT INFORMATION
  Report Type: Spontaneous
  Country: US (occurrence: US)
  Receive Date: 20120227
  Receipt Date: 20160510
  Transmission Date: 20160815
  Serious: Yes (Hospitalization)
  Sender: FDA-Public Use
  Company Number: US-PFIZER INC-2012048078

PATIENT
  Age: 69 Year
  Sex: Female

DRUGS (1)
  1. QUINAPRIL. [Suspect]
     Active Substance: QUINAPRIL
     Dosage: UNK

REACTIONS (5)
  - Clostridium difficile infection [Unknown]
  - Nervousness [Unknown]
  - Hypertension [Unknown]
  - Urticaria [Unknown]
  - Alopecia [Unknown]

NARRATIVE: CASE EVENT DATE: 201109
